FAERS Safety Report 18957159 (Version 2)
Quarter: 2021Q1

REPORT INFORMATION
  Report Type: Report from Study
  Country: DE (occurrence: DE)
  Receive Date: 20210302
  Receipt Date: 20210303
  Transmission Date: 20210420
  Serious: Yes (Death, Life-Threatening, Hospitalization)
  Sender: FDA-Public Use
  Company Number: DE-ROCHE-1961452

PATIENT
  Age: 68 Year
  Sex: Male
  Weight: 80 kg

DRUGS (15)
  1. HYDROCHLOROTHIAZIDE. [Concomitant]
     Active Substance: HYDROCHLOROTHIAZIDE
     Indication: HYPERTENSION
  2. LENALIDOMIDE [Suspect]
     Active Substance: LENALIDOMIDE
     Indication: MANTLE CELL LYMPHOMA
     Dosage: LAST ADMINISTRATION BEFORE SAE: 30/JUN/2017?MAINTENANCE CYCLE 1
     Route: 065
     Dates: start: 20170610, end: 20170712
  3. LENALIDOMIDE [Suspect]
     Active Substance: LENALIDOMIDE
     Dosage: LAST ADMINISTRATION BEFORE SAE: 20/FEB/2018?MAINTENANCE CYCLE 10
     Route: 065
     Dates: start: 20170808
  4. VINCRISTINE [Suspect]
     Active Substance: VINCRISTINE
     Indication: MANTLE CELL LYMPHOMA
     Dosage: LAST ADMINISTRATION BEFORE SAE: 04/MAY/2017
     Route: 065
     Dates: start: 20161207
  5. RAMIPRIL. [Concomitant]
     Active Substance: RAMIPRIL
     Indication: HYPERTENSION
     Dates: end: 20170707
  6. SIMVASTATIN. [Concomitant]
     Active Substance: SIMVASTATIN
     Indication: HYPERCHOLESTEROLAEMIA
     Dosage: STARTED BEFORE SUSPECT DRUG
     Dates: end: 20180414
  7. DOXORUBICIN [Suspect]
     Active Substance: DOXORUBICIN
     Indication: MANTLE CELL LYMPHOMA
     Dosage: LAST ADMINISTRATION BEFORE SAE: 04/MAY/2017
     Route: 065
     Dates: start: 20161207
  8. RITUXIMAB. [Suspect]
     Active Substance: RITUXIMAB
     Indication: MANTLE CELL LYMPHOMA
     Dosage: LAST ADMINISTRATION BEFORE SAE: 09/JUN/2017?MAINTENANCE CYCLE 1
     Route: 058
     Dates: start: 20170609, end: 20170609
  9. RITUXIMAB. [Suspect]
     Active Substance: RITUXIMAB
     Dosage: LAST DOSE ADMINISTERED BEFORE SAE: 22/JAN/2018?MAINTENANCE CYCLE 10
     Route: 058
     Dates: start: 20170807
  10. CYCLOPHOSPHAMIDE. [Suspect]
     Active Substance: CYCLOPHOSPHAMIDE
     Indication: MANTLE CELL LYMPHOMA
     Dosage: LAST ADMINISTRATION BEFORE SAE: 04/MAY/2017
     Route: 065
     Dates: start: 20161207
  11. PANTOZOL [Concomitant]
     Active Substance: PANTOPRAZOLE SODIUM
     Dosage: STARTED BEFORE SUSPECT DRUG
     Dates: end: 20180414
  12. TORASEMIDE [Concomitant]
     Active Substance: TORSEMIDE
     Indication: ARTERIOSCLEROSIS CORONARY ARTERY
     Dosage: STARTED BEFORE SUSPECT DRUG
     Dates: end: 20180414
  13. RITUXIMAB. [Suspect]
     Active Substance: RITUXIMAB
     Indication: MANTLE CELL LYMPHOMA
     Dosage: LAST ADMINISTRATION BEFORE SAE: 03/MAY/2017
     Route: 042
     Dates: start: 20161206
  14. PREDNISONE. [Suspect]
     Active Substance: PREDNISONE
     Indication: MANTLE CELL LYMPHOMA
     Dosage: LAST ADMINISTRATION BEFORE SAE: 08/MAY/2017
     Route: 065
     Dates: start: 20161206
  15. ALLOPURINOL. [Concomitant]
     Active Substance: ALLOPURINOL
     Dosage: STARTED BEFORE SUSPECT DRUG
     Dates: end: 20180414

REACTIONS (6)
  - Cardiac failure [Not Recovered/Not Resolved]
  - Adenocarcinoma metastatic [Fatal]
  - Anaemia [Not Recovered/Not Resolved]
  - General physical health deterioration [Fatal]
  - Pneumonia [Not Recovered/Not Resolved]
  - Atrial fibrillation [Recovered/Resolved]

NARRATIVE: CASE EVENT DATE: 20170707
